FAERS Safety Report 23755511 (Version 3)
Quarter: 2024Q3

REPORT INFORMATION
  Report Type: Spontaneous
  Country: US (occurrence: US)
  Receive Date: 20240418
  Receipt Date: 20240805
  Transmission Date: 20241017
  Serious: Yes (Other)
  Sender: ENDO
  Company Number: US-ENDO PHARMACEUTICALS INC-2024-001692

PATIENT
  Age: 9 Year
  Sex: Female
  Weight: 51 kg

DRUGS (6)
  1. SUPPRELIN LA [Suspect]
     Active Substance: HISTRELIN ACETATE
     Indication: Pituitary gonadotropin hyperfunction
     Dosage: 50 MILLIGRAM, ONCE A YEAR (ANNUALLY)
     Route: 058
     Dates: start: 20240322, end: 20240403
  2. SUPPRELIN LA [Suspect]
     Active Substance: HISTRELIN ACETATE
     Indication: Pituitary gonadotropin hyperfunction
     Dosage: 50 MILLIGRAM, ONCE A YEAR (ANNUALLY)
     Route: 058
     Dates: start: 20240322, end: 20240403
  3. SUPPRELIN LA [Suspect]
     Active Substance: HISTRELIN ACETATE
     Indication: Pituitary gonadotropin hyperfunction
     Dosage: 50 MILLIGRAM, ONCE A YEAR (ANNUALLY)
     Route: 058
     Dates: start: 20240322, end: 20240403
  4. SUPPRELIN LA [Suspect]
     Active Substance: HISTRELIN ACETATE
     Indication: Precocious puberty
     Dosage: 50 MILLIGRAM, ONCE A YEAR (ANNUALLY)
     Route: 058
     Dates: start: 20221107, end: 20240322
  5. SUPPRELIN LA [Suspect]
     Active Substance: HISTRELIN ACETATE
     Indication: Precocious puberty
     Dosage: 50 MILLIGRAM, ONCE A YEAR (ANNUALLY)
     Route: 058
     Dates: start: 20221107, end: 20240322
  6. SUPPRELIN LA [Suspect]
     Active Substance: HISTRELIN ACETATE
     Indication: Precocious puberty
     Dosage: 50 MILLIGRAM, ONCE A YEAR (ANNUALLY)
     Route: 058
     Dates: start: 20221107, end: 20240322

REACTIONS (3)
  - Implant site abscess [Recovered/Resolved]
  - Expulsion of medication [Recovered/Resolved]
  - Inappropriate schedule of product administration [Recovered/Resolved]

NARRATIVE: CASE EVENT DATE: 20231101
